FAERS Safety Report 7296259-6 (Version None)
Quarter: 2011Q1

REPORT INFORMATION
  Report Type: 
  Country: None (occurrence: None)
  Receive Date: 20110216
  Receipt Date: 20110207
  Transmission Date: 20110831
  Serious: Yes (Hospitalization)
  Sender: FDA-Public Use
  Company Number: US-ASTRAZENECA-2011SE07298

PATIENT
  Age: 57 Year
  Sex: Female
  Weight: 90.7 kg

DRUGS (14)
  1. MARTIZIPINE [Concomitant]
  2. FURISOMIDE [Concomitant]
  3. FOLIC ACID [Concomitant]
  4. FEXOPHENADINE [Concomitant]
     Indication: ANTIALLERGIC THERAPY
  5. METHADONE HYDROCHLORIDE [Concomitant]
     Indication: HEADACHE
  6. CORTIFARIN [Concomitant]
     Indication: CROHN'S DISEASE
  7. SEROQUEL [Suspect]
     Indication: HEADACHE
     Route: 048
     Dates: start: 20050101
  8. SEROQUEL [Suspect]
     Route: 048
  9. ROFON [Concomitant]
     Indication: MUSCLE SPASMS
  10. NEXIUM [Concomitant]
  11. CALCIUM [Concomitant]
  12. POTASSIUM [Concomitant]
  13. PREVASTATIN [Concomitant]
  14. CELEBREX [Concomitant]

REACTIONS (8)
  - HYPOTHYROIDISM [None]
  - NAUSEA [None]
  - ALOPECIA [None]
  - VOMITING [None]
  - CHOLESTEATOMA [None]
  - CATARACT [None]
  - WEIGHT DECREASED [None]
  - CYST [None]
